FAERS Safety Report 17022510 (Version 1)
Quarter: 2019Q4

REPORT INFORMATION
  Report Type: Spontaneous
  Country: US (occurrence: US)
  Receive Date: 20191112
  Receipt Date: 20191112
  Transmission Date: 20200122
  Serious: No
  Sender: FDA-Public Use
  Company Number: US-ACTELION-A-US2019-197824

PATIENT
  Sex: Female

DRUGS (1)
  1. UPTRAVI [Suspect]
     Active Substance: SELEXIPAG
     Indication: PRODUCT USED FOR UNKNOWN INDICATION
     Route: 048

REACTIONS (15)
  - Weight fluctuation [Unknown]
  - Malaise [Unknown]
  - Stress [Unknown]
  - Dizziness [Unknown]
  - Depressed mood [Unknown]
  - Physical deconditioning [Unknown]
  - Pain [Unknown]
  - Cardiac disorder [Unknown]
  - Thirst [Unknown]
  - Unevaluable event [Unknown]
  - Feeding disorder [Unknown]
  - Cardiac failure [Unknown]
  - Migraine [Unknown]
  - Appetite disorder [Unknown]
  - Asthenia [Unknown]
